FAERS Safety Report 7886846-6 (Version None)
Quarter: 2011Q4

REPORT INFORMATION
  Report Type: 
  Country: None (occurrence: None)
  Receive Date: 20111102
  Receipt Date: 20110712
  Transmission Date: 20120403
  Serious: No
  Sender: FDA-Public Use
  Company Number: US-AMGEN-USASP2011035296

PATIENT
  Age: 52 Year
  Sex: Female
  Weight: 92.971 kg

DRUGS (9)
  1. VITAMIN D [Concomitant]
     Dosage: 400 IU, UNK
     Route: 048
  2. MAGNESIUM [Concomitant]
     Dosage: 30 MG, UNK
     Route: 048
  3. ENBREL [Suspect]
     Indication: PRODUCT USED FOR UNKNOWN INDICATION
     Dosage: 50 MG, QWK
  4. VITAMIN B-12 [Concomitant]
     Dosage: 100 MUG, UNK
     Route: 048
  5. DIOVAN [Concomitant]
     Dosage: 40 MG, UNK
     Route: 048
  6. FISH OIL [Concomitant]
  7. IBUPROFEN [Concomitant]
     Dosage: 200 MG, UNK
     Route: 048
  8. PLAQUENIL [Concomitant]
     Dosage: 200 MG, UNK
     Route: 048
  9. HYDROCHLOROTHIAZIDE [Concomitant]
     Dosage: 12.5 MG, UNK
     Route: 048

REACTIONS (1)
  - SKIN LESION [None]
